FAERS Safety Report 16103204 (Version 1)
Quarter: 2019Q1

REPORT INFORMATION
  Report Type: Report from Study
  Country: None (occurrence: BR)
  Receive Date: 20190322
  Receipt Date: 20190322
  Transmission Date: 20190418
  Serious: Yes (Hospitalization, Other)
  Sender: FDA-Public Use
  Company Number: BR-ABBVIE-17K-020-1966514-00

PATIENT
  Age: 56 Year
  Sex: Male
  Weight: 75 kg

DRUGS (8)
  1. HUMIRA [Suspect]
     Active Substance: ADALIMUMAB
     Indication: COLITIS ULCERATIVE
     Dosage: WEEK 0
     Route: 058
     Dates: start: 20160729, end: 20160729
  2. HUMIRA [Interacting]
     Active Substance: ADALIMUMAB
     Dosage: WEEK 2
     Route: 058
     Dates: start: 201608, end: 201608
  3. RAMIPRIL. [Concomitant]
     Active Substance: RAMIPRIL
     Indication: ARRHYTHMIA
     Route: 048
     Dates: start: 201703
  4. ALLOPURINOL. [Interacting]
     Active Substance: ALLOPURINOL
     Indication: BLOOD URIC ACID INCREASED
     Route: 065
  5. RAMIPRIL. [Concomitant]
     Active Substance: RAMIPRIL
     Indication: CARDIAC DISORDER
     Route: 048
  6. CONCOR [Concomitant]
     Active Substance: BISOPROLOL FUMARATE
     Indication: ARRHYTHMIA
     Route: 048
  7. HUMIRA [Interacting]
     Active Substance: ADALIMUMAB
     Dosage: WEEK 3
     Route: 058
     Dates: start: 201608, end: 201608
  8. HUMIRA [Interacting]
     Active Substance: ADALIMUMAB
     Route: 058
     Dates: start: 2016

REACTIONS (20)
  - Gastrointestinal haemorrhage [Recovered/Resolved]
  - Diarrhoea [Recovered/Resolved]
  - Diarrhoea [Recovering/Resolving]
  - Colitis ulcerative [Recovered/Resolved]
  - Weight decreased [Not Recovered/Not Resolved]
  - Rectal tenesmus [Recovering/Resolving]
  - Pain in extremity [Recovered/Resolved]
  - Abdominal pain [Not Recovered/Not Resolved]
  - Flatulence [Not Recovered/Not Resolved]
  - Pain in extremity [Unknown]
  - Malaise [Recovered/Resolved]
  - Pain [Unknown]
  - Chills [Unknown]
  - Anal incontinence [Not Recovered/Not Resolved]
  - Frequent bowel movements [Recovered/Resolved]
  - Inflammation [Recovered/Resolved]
  - Malaise [Recovered/Resolved]
  - Malaise [Unknown]
  - Drug interaction [Unknown]
  - Drug ineffective [Unknown]

NARRATIVE: CASE EVENT DATE: 201612
